FAERS Safety Report 9370533 (Version 1)
Quarter: 2013Q2

REPORT INFORMATION
  Report Type: Report from Study
  Country: KR (occurrence: KR)
  Receive Date: 20130626
  Receipt Date: 20130626
  Transmission Date: 20140414
  Serious: Yes (Hospitalization)
  Sender: FDA-Public Use
  Company Number: KR-ABBOTT-13P-090-1107117-00

PATIENT
  Age: 19 Year
  Sex: Female
  Weight: 37 kg

DRUGS (3)
  1. HUMIRA [Suspect]
     Indication: CROHN^S DISEASE
     Dosage: INDUCTION THERAPY
     Route: 058
     Dates: start: 20130515, end: 20130602
  2. HUMIRA [Suspect]
     Route: 058
     Dates: start: 20130603
  3. MESALAZINE [Concomitant]
     Indication: CROHN^S DISEASE
     Route: 048
     Dates: start: 20121122

REACTIONS (4)
  - Pharyngeal oedema [Unknown]
  - Feeling hot [Unknown]
  - Haematochezia [Unknown]
  - Crohn^s disease [Not Recovered/Not Resolved]
